FAERS Safety Report 15511497 (Version 1)
Quarter: 2018Q4

REPORT INFORMATION
  Report Type: Spontaneous
  Country: US (occurrence: US)
  Receive Date: 20181010
  Receipt Date: 20181010
  Transmission Date: 20190205
  Serious: Yes (Death)
  Sender: FDA-Public Use
  Company Number: None

PATIENT
  Age: 61 Year
  Sex: Female
  Weight: 61.2 kg

DRUGS (3)
  1. AURANOFIN 6 MG [Suspect]
     Active Substance: AURANOFIN
     Indication: OVARIAN CANCER
     Route: 048
     Dates: start: 20180821, end: 20181007
  2. SIROLIMUS 5 MG [Suspect]
     Active Substance: SIROLIMUS
     Indication: OVARIAN CANCER
     Route: 048
     Dates: start: 20180821, end: 20181007
  3. LORAZEPAM. [Concomitant]
     Active Substance: LORAZEPAM

REACTIONS (6)
  - Small intestinal obstruction [None]
  - Sepsis [None]
  - Diarrhoea [None]
  - Hypotension [None]
  - Blood lactic acid increased [None]
  - Tachycardia [None]

NARRATIVE: CASE EVENT DATE: 20181007
